FAERS Safety Report 12247883 (Version 1)
Quarter: 2016Q2

REPORT INFORMATION
  Report Type: Spontaneous
  Country: US (occurrence: US)
  Receive Date: 20160408
  Receipt Date: 20160408
  Transmission Date: 20160815
  Serious: Yes (Death, Other)
  Sender: FDA-Public Use
  Company Number: US-TAKEDA-2016TUS005919

PATIENT

DRUGS (1)
  1. ACTOS [Suspect]
     Active Substance: PIOGLITAZONE HYDROCHLORIDE
     Indication: TYPE 2 DIABETES MELLITUS
     Dosage: UNK
     Route: 048

REACTIONS (6)
  - Metastases to adrenals [Fatal]
  - Metastases to bone [Fatal]
  - Metastatic carcinoma of the bladder [Fatal]
  - Sepsis [Fatal]
  - Urinary tract infection [Fatal]
  - Metastases to lung [Fatal]
